FAERS Safety Report 6841741-6 (Version None)
Quarter: 2010Q3

REPORT INFORMATION
  Report Type: 
  Country: None (occurrence: None)
  Receive Date: 20100714
  Receipt Date: 20070712
  Transmission Date: 20110219
  Serious: No
  Sender: FDA-Public Use
  Company Number: US-PFIZER INC-2007059941

PATIENT
  Sex: Female
  Weight: 68.6 kg

DRUGS (6)
  1. CHANTIX [Suspect]
     Indication: SMOKING CESSATION THERAPY
     Dates: start: 20070630
  2. NICORETTE [Suspect]
     Dosage: EVERY DAY
     Dates: start: 20070708, end: 20070712
  3. WELLBUTRIN [Concomitant]
  4. ZOLOFT [Concomitant]
  5. ACYCLOVIR [Concomitant]
  6. MULTI-VITAMINS [Concomitant]

REACTIONS (6)
  - ANXIETY [None]
  - DRUG WITHDRAWAL SYNDROME [None]
  - HEADACHE [None]
  - NERVOUSNESS [None]
  - OBSESSIVE THOUGHTS [None]
  - RESTLESSNESS [None]
